FAERS Safety Report 4774716-1 (Version None)
Quarter: 2005Q3

REPORT INFORMATION
  Report Type: 
  Country: None (occurrence: None)
  Receive Date: 20050921
  Receipt Date: 20050919
  Transmission Date: 20060218
  Serious: Yes (Other)
  Sender: FDA-Public Use
  Company Number: US-GLAXOSMITHKLINE-A0574845A

PATIENT
  Age: 43 Year
  Sex: Female

DRUGS (3)
  1. WELLBUTRIN [Suspect]
     Indication: DEPRESSION
     Route: 048
  2. BUPROPION [Suspect]
  3. UNKNOWN [Concomitant]

REACTIONS (6)
  - ABNORMAL BEHAVIOUR [None]
  - FATIGUE [None]
  - HEADACHE [None]
  - MOOD SWINGS [None]
  - PERFORMANCE STATUS DECREASED [None]
  - SUICIDAL IDEATION [None]
